APPROVED DRUG PRODUCT: FLUDEOXYGLUCOSE F18
Active Ingredient: FLUDEOXYGLUCOSE F-18
Strength: 20-400mCi/ML
Dosage Form/Route: INJECTABLE;INTRAVENOUS
Application: A216125 | Product #001 | TE Code: AP
Applicant: BAMF HEALTH INC
Approved: Mar 11, 2025 | RLD: No | RS: No | Type: RX